FAERS Safety Report 5129240-3 (Version None)
Quarter: 2006Q4

REPORT INFORMATION
  Report Type: 
  Country: None (occurrence: None)
  Receive Date: 20061011
  Receipt Date: 20060921
  Transmission Date: 20070319
  Serious: Yes (Hospitalization)
  Sender: FDA-Public Use
  Company Number: IT200609006571

PATIENT
  Age: 39 Year
  Sex: Female

DRUGS (3)
  1. GEMZAR [Suspect]
     Indication: BREAST CANCER METASTATIC
     Dosage: 1250 MG, OTHER, INTRAVENOUS
     Route: 042
  2. TAXOTERE (DOCETAXEL0 [Concomitant]
  3. KYTRIL [Concomitant]

REACTIONS (4)
  - ALANINE AMINOTRANSFERASE INCREASED [None]
  - ASPARTATE AMINOTRANSFERASE INCREASED [None]
  - GAMMA-GLUTAMYLTRANSFERASE INCREASED [None]
  - PALMAR-PLANTAR ERYTHRODYSAESTHESIA SYNDROME [None]
